FAERS Safety Report 4533895-1 (Version None)
Quarter: 2004Q4

REPORT INFORMATION
  Report Type: 
  Country: None (occurrence: None)
  Receive Date: 20041214
  Receipt Date: 20040831
  Transmission Date: 20050328
  Serious: No
  Sender: FDA-Public Use
  Company Number: US_0409105275

PATIENT
  Age: 52 Year
  Sex: Male
  Weight: 99 kg

DRUGS (6)
  1. CIALIS [Suspect]
     Dosage: 20 MG
     Dates: start: 20040801
  2. GARLIC [Concomitant]
  3. MULTIVITAMINS NOS (MULTIVITAMIN NOS) [Concomitant]
  4. CALCIUM [Concomitant]
  5. MANESIUM [Concomitant]
  6. VITAMIN C [Concomitant]

REACTIONS (3)
  - DYSPEPSIA [None]
  - FLUSHING [None]
  - THERAPEUTIC RESPONSE DECREASED [None]
